FAERS Safety Report 8890373 (Version 2)
Quarter: 2012Q4

REPORT INFORMATION
  Report Type: 
  Country: CA (occurrence: CA)
  Receive Date: 20121107
  Receipt Date: 20121128
  Transmission Date: 20130627
  Serious: Yes (Death)
  Sender: FDA-Public Use
  Company Number: PHHY2012CA101788

PATIENT
  Age: 47 Year
  Sex: Male

DRUGS (5)
  1. CLOZARIL [Suspect]
     Indication: SCHIZOPHRENIA
     Route: 048
     Dates: start: 20010326
  2. LOPRESSOR [Concomitant]
     Dosage: 50 mg, BID
  3. FENOFIBRATE [Concomitant]
     Dosage: 160 mg
  4. LIPITOR [Concomitant]
     Dosage: 40 mg
  5. FLUENT [Concomitant]
     Dosage: 0.1 mg, BID

REACTIONS (1)
  - Death [Fatal]
